FAERS Safety Report 9465151 (Version 2)
Quarter: 2013Q3

REPORT INFORMATION
  Report Type: Spontaneous
  Country: US (occurrence: US)
  Receive Date: 20130819
  Receipt Date: 20130829
  Transmission Date: 20140515
  Serious: Yes (Other)
  Sender: FDA-Public Use
  Company Number: US-GILEAD-2013-0081539

PATIENT
  Age: 20 Year
  Sex: Female

DRUGS (2)
  1. LETAIRIS [Suspect]
     Indication: PULMONARY HYPERTENSION
     Dosage: 5 MG, UNK
     Route: 048
     Dates: start: 20121214
  2. LETAIRIS [Suspect]
     Indication: DERMATOMYOSITIS

REACTIONS (2)
  - Pregnancy [Recovered/Resolved]
  - Abortion induced [Recovered/Resolved]
